FAERS Safety Report 22090097 (Version 1)
Quarter: 2023Q1

REPORT INFORMATION
  Report Type: Spontaneous
  Country: GB (occurrence: None)
  Receive Date: 20230313
  Receipt Date: 20230313
  Transmission Date: 20230418
  Serious: No
  Sender: FDA-Public Use
  Company Number: None

PATIENT
  Age: 9 Year
  Sex: Male

DRUGS (4)
  1. BACLOFEN [Suspect]
     Active Substance: BACLOFEN
     Indication: Dystonia
     Route: 065
  2. CLONIDINE [Suspect]
     Active Substance: CLONIDINE
     Indication: Dystonia
     Route: 065
  3. LEVETIRACETAM [Concomitant]
     Active Substance: LEVETIRACETAM
  4. VIGABATRIN [Concomitant]
     Active Substance: VIGABATRIN

REACTIONS (12)
  - Drug ineffective [None]
  - Neurodevelopmental disorder [None]
  - Neurotransmitter level altered [None]
  - Seizure [None]
  - Dysmyelination [None]
  - Partial seizures [None]
  - Epileptic encephalopathy [None]
  - Muscle spasticity [None]
  - Dystonia [None]
  - Developmental delay [None]
  - Intellectual disability [None]
  - Visual impairment [None]
